FAERS Safety Report 9358070 (Version 1)
Quarter: 2013Q2

REPORT INFORMATION
  Report Type: Spontaneous
  Country: DE (occurrence: DE)
  Receive Date: 20130620
  Receipt Date: 20130620
  Transmission Date: 20140414
  Serious: Yes (Hospitalization, Other)
  Sender: FDA-Public Use
  Company Number: DE-009507513-1306DEU005062

PATIENT
  Age: 47 Year
  Sex: Female

DRUGS (2)
  1. DIAZOXIDE [Suspect]
     Indication: HYPOGLYCAEMIA
  2. OCTREOTIDE [Concomitant]
     Indication: HYPOGLYCAEMIA

REACTIONS (2)
  - Pancreatectomy [Unknown]
  - Drug ineffective [Unknown]
